FAERS Safety Report 7321028-8 (Version None)
Quarter: 2011Q1

REPORT INFORMATION
  Report Type: 
  Country: None (occurrence: None)
  Receive Date: 20110228
  Receipt Date: 20110223
  Transmission Date: 20110831
  Serious: Yes (Other)
  Sender: FDA-Public Use
  Company Number: US-PFIZER INC-2011025469

PATIENT
  Sex: Male
  Weight: 40.816 kg

DRUGS (3)
  1. CONCERTA [Concomitant]
     Dosage: 72 MG, UNK
  2. GEODON [Suspect]
     Indication: ATTENTION DEFICIT/HYPERACTIVITY DISORDER
     Dosage: 20 MG, 2X/DAY
     Route: 048
     Dates: end: 20110101
  3. GEODON [Suspect]
     Indication: BIPOLAR DISORDER
     Dosage: 20 MG, 1X/DAY
     Dates: start: 20110105

REACTIONS (6)
  - AGITATION [None]
  - LIBIDO INCREASED [None]
  - HOSTILITY [None]
  - AGGRESSION [None]
  - COUGH [None]
  - POLLAKIURIA [None]
